FAERS Safety Report 19770351 (Version 2)
Quarter: 2021Q3

REPORT INFORMATION
  Report Type: Report from Study
  Country: US (occurrence: US)
  Receive Date: 20210831
  Receipt Date: 20210831
  Transmission Date: 20211014
  Serious: Yes (Hospitalization)
  Sender: FDA-Public Use
  Company Number: US-EXELIXIS-CABO-21043692

PATIENT
  Age: 77 Year
  Sex: Male

DRUGS (2)
  1. CABOMETYX [Suspect]
     Active Substance: CABOZANTINIB S-MALATE
     Dosage: 60 MG, QD ON MONDAY TO FRIDAY AND OFF SATURDAY AND SUNDAY
     Route: 048
  2. CABOMETYX [Suspect]
     Active Substance: CABOZANTINIB S-MALATE
     Indication: RENAL CANCER
     Dosage: 60 MG, QD ON MONDAY TO FRIDAY AND OFF SATURDAY AND SUNDAY
     Route: 048
     Dates: start: 202107

REACTIONS (2)
  - Inappropriate schedule of product administration [Unknown]
  - Arthropathy [Unknown]

NARRATIVE: CASE EVENT DATE: 202107
